FAERS Safety Report 4828850-8 (Version None)
Quarter: 2005Q4

REPORT INFORMATION
  Report Type: 
  Country: None (occurrence: None)
  Receive Date: 20051014
  Receipt Date: 20050725
  Transmission Date: 20060501
  Serious: No
  Sender: FDA-Public Use
  Company Number: 2005SP001159

PATIENT
  Age: 58 Year
  Sex: Female
  Weight: 74.3899 kg

DRUGS (7)
  1. LUNESTA [Suspect]
     Indication: ANXIETY
     Dosage: 3 MG; HS; ORAL
     Route: 048
     Dates: start: 20050501, end: 20050601
  2. LUNESTA [Suspect]
     Indication: NERVOUSNESS
     Dosage: 3 MG; HS; ORAL
     Route: 048
     Dates: start: 20050501, end: 20050601
  3. PAXIL [Concomitant]
  4. ZETIA [Concomitant]
  5. AMBIEN [Concomitant]
  6. DIOVANE [Concomitant]
  7. NASALCORT [Concomitant]

REACTIONS (3)
  - ANXIETY [None]
  - DYSGEUSIA [None]
  - NERVOUSNESS [None]
